FAERS Safety Report 20618448 (Version 1)
Quarter: 2022Q1

REPORT INFORMATION
  Report Type: Spontaneous
  Country: US (occurrence: US)
  Receive Date: 20220321
  Receipt Date: 20220321
  Transmission Date: 20220423
  Serious: Yes (Hospitalization, Other)
  Sender: FDA-Public Use
  Company Number: US-BoehringerIngelheim-2022-BI-159610

PATIENT
  Age: 62 Year
  Sex: Male

DRUGS (8)
  1. MIRAPEX [Suspect]
     Active Substance: PRAMIPEXOLE DIHYDROCHLORIDE
     Indication: Restless legs syndrome
     Dates: start: 20151211, end: 20180514
  2. PF-06425090;PLACEBO (PF-06425090) [Concomitant]
     Indication: Clostridium difficile infection
     Route: 030
     Dates: start: 20180503, end: 20180503
  3. budesomide/Formoterol [Concomitant]
     Indication: Chronic obstructive pulmonary disease
  4. ROSUVASTATIN [Concomitant]
     Active Substance: ROSUVASTATIN
     Indication: Hyperlipidaemia
  5. SPIRONOLACTONE [Concomitant]
     Active Substance: SPIRONOLACTONE
     Indication: Swelling
  6. LISINOPRIL [Concomitant]
     Active Substance: LISINOPRIL
     Indication: Hypertension
  7. DULOXETINE [Concomitant]
     Active Substance: DULOXETINE
     Indication: Myalgia
  8. TORSEMIDE [Concomitant]
     Active Substance: TORSEMIDE
     Indication: Swelling
     Dates: start: 201802

REACTIONS (3)
  - Left ventricular failure [Not Recovered/Not Resolved]
  - Muscle spasms [Recovered/Resolved]
  - Muscle spasticity [Unknown]

NARRATIVE: CASE EVENT DATE: 20170525
